FAERS Safety Report 14176331 (Version 5)
Quarter: 2018Q3

REPORT INFORMATION
  Report Type: Report from Study
  Country: CA (occurrence: CA)
  Receive Date: 20171109
  Receipt Date: 20180823
  Transmission Date: 20181010
  Serious: Yes (Hospitalization)
  Sender: FDA-Public Use
  Company Number: CA-HLSUS-2017-CA-001108

PATIENT
  Sex: Female

DRUGS (2)
  1. CLOZARIL [Suspect]
     Active Substance: CLOZAPINE
     Indication: SCHIZOPHRENIA
     Dosage: 325MG DAILY BED TIME
     Route: 048
     Dates: start: 20040318, end: 20180807
  2. DIVALOPROEX [Concomitant]
     Dosage: 500MG DAILY BED TIME
     Route: 048

REACTIONS (3)
  - Brain neoplasm [Unknown]
  - Central nervous system lymphoma [Unknown]
  - Urinary tract infection [Unknown]
